FAERS Safety Report 22247094 (Version 2)
Quarter: 2023Q2

REPORT INFORMATION
  Report Type: Spontaneous
  Country: US (occurrence: US)
  Receive Date: 20230424
  Receipt Date: 20230504
  Transmission Date: 20230722
  Serious: No
  Sender: FDA-Public Use
  Company Number: US-009507513-2304USA006611

PATIENT
  Sex: Female
  Weight: 111.29 kg

DRUGS (2)
  1. JANUMET [Suspect]
     Active Substance: METFORMIN HYDROCHLORIDE\SITAGLIPTIN PHOSPHATE
     Dosage: 2 TABLETS A DAY
     Route: 048
     Dates: start: 20200701, end: 2022
  2. JANUMET [Suspect]
     Active Substance: METFORMIN HYDROCHLORIDE\SITAGLIPTIN PHOSPHATE
     Dosage: 1 TABLET A DAY
     Route: 048
     Dates: start: 20221014, end: 20230411

REACTIONS (6)
  - Product dose omission issue [Unknown]
  - Intentional product misuse [Unknown]
  - Product prescribing issue [Unknown]
  - Inability to afford medication [Unknown]
  - Maternal exposure during pregnancy [Unknown]
  - No adverse event [Unknown]

NARRATIVE: CASE EVENT DATE: 20220101
